FAERS Safety Report 5809210-X (Version None)
Quarter: 2008Q3

REPORT INFORMATION
  Report Type: 
  Country: None (occurrence: None)
  Receive Date: 20080714
  Receipt Date: 20080702
  Transmission Date: 20090109
  Serious: Yes (Other)
  Sender: FDA-Public Use
  Company Number: US-PFIZER INC-2008056014

PATIENT

DRUGS (2)
  1. DEPO-MEDROL [Suspect]
  2. XYLOCAINE [Suspect]

REACTIONS (1)
  - CELLULITIS [None]
